FAERS Safety Report 9154521 (Version 1)
Quarter: 2013Q1

REPORT INFORMATION
  Report Type: Spontaneous
  Country: US (occurrence: None)
  Receive Date: 20130308
  Receipt Date: 20130308
  Transmission Date: 20140127
  Serious: Yes (Hospitalization)
  Sender: FDA-Public Use
  Company Number: None

PATIENT
  Age: 65 Year
  Sex: Female
  Weight: 67.7 kg

DRUGS (2)
  1. BENICAR/HCT 40-25 [Suspect]
     Indication: HYPERTENSION
     Dosage: 40-25
     Dates: start: 20111012, end: 20121009
  2. BENICAR 20 MG DAIICHI SANKYO [Suspect]
     Indication: HYPERTENSION

REACTIONS (3)
  - Diarrhoea [None]
  - Prerenal failure [None]
  - Colitis microscopic [None]
